FAERS Safety Report 13084138 (Version 1)
Quarter: 2017Q1

REPORT INFORMATION
  Report Type: Spontaneous
  Country: US (occurrence: US)
  Receive Date: 20170103
  Receipt Date: 20170103
  Transmission Date: 20170428
  Serious: Yes (Death)
  Sender: FDA-Public Use
  Company Number: None

PATIENT
  Age: 59 Year
  Sex: Female

DRUGS (1)
  1. CAPECITABINE 500MG TAB TEVA [Suspect]
     Active Substance: CAPECITABINE
     Indication: METASTASIS
     Dosage: 3 LABS (1500MG); BID DAYS 1-14 THEN 7 DAYS OFF; ORAL
     Route: 048
     Dates: start: 201611, end: 201612

REACTIONS (1)
  - Death [None]

NARRATIVE: CASE EVENT DATE: 20161223
